FAERS Safety Report 18932086 (Version 1)
Quarter: 2021Q1

REPORT INFORMATION
  Report Type: Spontaneous
  Country: US (occurrence: US)
  Receive Date: 20210223
  Receipt Date: 20210223
  Transmission Date: 20210420
  Serious: No
  Sender: FDA-Public Use
  Company Number: US-ROCHE-2712730

PATIENT
  Sex: Male
  Weight: 68 kg

DRUGS (10)
  1. EVRYSDI [Suspect]
     Active Substance: RISDIPLAM
     Indication: SPINAL MUSCULAR ATROPHY
     Dosage: 6.6 MLS; ONGOING: NO
     Route: 048
     Dates: start: 20200828
  2. IBUPROFEN. [Concomitant]
     Active Substance: IBUPROFEN
     Dosage: TAKE (1 TABLET) BY MOUTH, AS NEEDED FOR PAIN
  3. MULTIVITAMIN WITH MINERALS [Concomitant]
     Active Substance: MINERALS\VITAMINS
     Dosage: TAKE 1 TABLET BY MOUTH
  4. FLUTICASONE PROPIONATE. [Concomitant]
     Active Substance: FLUTICASONE PROPIONATE
     Dosage: 1 SPRAY IN EACH NOSTRIL
  5. IPRATROPIUM/ALBUTEROL [Concomitant]
     Active Substance: ALBUTEROL\IPRATROPIUM
     Dosage: VVN, ATC PRN
  6. LORATADINE. [Concomitant]
     Active Substance: LORATADINE
     Dosage: TAKE BY MOUTH
  7. BUDESONIDE. [Concomitant]
     Active Substance: BUDESONIDE
     Dosage: VVN
  8. HYDROCORTISONE. [Concomitant]
     Active Substance: HYDROCORTISONE
     Dosage: APP ON THE SKIN, PRN
  9. CULTURELLE PROBIOTICS DIGESTIVE HEALTH [Concomitant]
     Dosage: TAKE 1 TABLET BY MOUTH
  10. VENTOLIN HFA [Concomitant]
     Active Substance: ALBUTEROL SULFATE
     Dosage: INL 2 PFS, AROUND THE CLOCK
     Route: 048

REACTIONS (2)
  - Fatigue [Not Recovered/Not Resolved]
  - Asthenia [Not Recovered/Not Resolved]
